FAERS Safety Report 8905981 (Version 1)
Quarter: 2012Q4

REPORT INFORMATION
  Report Type: 
  Country: AU (occurrence: AU)
  Receive Date: 20121111
  Receipt Date: 20121111
  Transmission Date: 20130627
  Serious: Yes (Hospitalization)
  Sender: FDA-Public Use
  Company Number: AU-MERCK-1211AUS002609

PATIENT
  Age: 39 Year
  Sex: Female
  Weight: 48 kg

DRUGS (6)
  1. ROCURONIUM BROMIDE [Suspect]
     Dosage: 50 mg, Once
     Route: 042
     Dates: start: 20120704, end: 20120704
  2. MIDAZOLAM [Suspect]
     Dosage: 3 mg, Once
     Route: 042
     Dates: start: 20120704, end: 20120704
  3. CEFAZOLIN SODIUM [Suspect]
     Dosage: 1 g, Once
     Route: 042
     Dates: start: 20120704, end: 20120704
  4. FENTANYL [Suspect]
     Dosage: 100 Microgram, Once
     Route: 042
     Dates: start: 20120704, end: 20120704
  5. [THERAPY UNSPECIFIED] [Suspect]
     Dosage: Once, Dose unspecified
     Dates: start: 20120704, end: 20120704
  6. PROPOFOL [Suspect]
     Dosage: Injection emulsion, dose unspecified per minute
     Route: 042
     Dates: start: 20120704, end: 20120704

REACTIONS (2)
  - Tryptase increased [Recovered/Resolved]
  - Anaphylactic reaction [Recovered/Resolved]
